FAERS Safety Report 6590906-X (Version None)
Quarter: 2010Q1

REPORT INFORMATION
  Report Type: 
  Country: None (occurrence: None)
  Receive Date: 20100219
  Receipt Date: 20100128
  Transmission Date: 20100710
  Serious: Yes (Hospitalization, Other)
  Sender: FDA-Public Use
  Company Number: JP-ROCHE-680309

PATIENT
  Sex: Male

DRUGS (7)
  1. ACTEMRA [Suspect]
     Indication: JUVENILE ARTHRITIS
     Route: 041
     Dates: start: 20091207, end: 20091222
  2. PREDONINE [Concomitant]
     Route: 048
  3. NEORAL [Concomitant]
     Dosage: DOSE FORM: PERORAL AGENT.
     Route: 048
  4. RENIVEZE [Concomitant]
     Route: 048
  5. TOWARAT-L [Concomitant]
     Route: 048
  6. TAKEPRON [Concomitant]
     Route: 048
  7. URSO 250 [Concomitant]
     Dosage: DOSE FORM: PERORAL AGENT.
     Route: 048

REACTIONS (5)
  - ABDOMINAL PAIN [None]
  - C-REACTIVE PROTEIN INCREASED [None]
  - HISTIOCYTOSIS HAEMATOPHAGIC [None]
  - HYPERTENSIVE ENCEPHALOPATHY [None]
  - PYREXIA [None]
